FAERS Safety Report 22627379 (Version 4)
Quarter: 2024Q3

REPORT INFORMATION
  Report Type: Report from Study
  Country: US (occurrence: US)
  Receive Date: 20230622
  Receipt Date: 20240806
  Transmission Date: 20241017
  Serious: Yes (Hospitalization, Other)
  Sender: ABBVIE
  Company Number: US-ABBVIE-5298632

PATIENT
  Sex: Female

DRUGS (1)
  1. IMBRUVICA [Suspect]
     Active Substance: IBRUTINIB
     Indication: Lymphocytic leukaemia
     Route: 048

REACTIONS (5)
  - Spinal fracture [Unknown]
  - Hip fracture [Unknown]
  - Fall [Unknown]
  - Arthralgia [Unknown]
  - Back pain [Unknown]
